FAERS Safety Report 12865304 (Version 1)
Quarter: 2016Q4

REPORT INFORMATION
  Report Type: Spontaneous
  Country: HR (occurrence: HR)
  Receive Date: 20161020
  Receipt Date: 20161020
  Transmission Date: 20170207
  Serious: Yes (Death, Other)
  Sender: FDA-Public Use
  Company Number: HR-ASTRAZENECA-2016SF09209

PATIENT
  Age: 66 Year
  Sex: Female

DRUGS (3)
  1. IRESSA [Suspect]
     Active Substance: GEFITINIB
     Indication: LUNG NEOPLASM MALIGNANT
     Route: 048
     Dates: start: 201109, end: 201402
  2. AREDIA [Concomitant]
     Active Substance: PAMIDRONATE DISODIUM
     Dosage: 90 MG EVERY SIX WEEKS
  3. AREDIA [Concomitant]
     Active Substance: PAMIDRONATE DISODIUM

REACTIONS (17)
  - Confusional state [Unknown]
  - Headache [Unknown]
  - Balance disorder [Unknown]
  - Depression [Unknown]
  - Hyperhidrosis [Unknown]
  - Metastases to meninges [Fatal]
  - Metastases to central nervous system [Fatal]
  - Dry skin [Unknown]
  - Fatigue [Unknown]
  - Decreased appetite [Unknown]
  - Hepatic enzyme increased [Unknown]
  - Irritability [Unknown]
  - Red blood cell sedimentation rate increased [Unknown]
  - Amnesia [Unknown]
  - Malignant neoplasm progression [Fatal]
  - Weight decreased [Unknown]
  - Asthenia [Unknown]

NARRATIVE: CASE EVENT DATE: 2011
